FAERS Safety Report 23528152 (Version 2)
Quarter: 2024Q1

REPORT INFORMATION
  Report Type: Report from Study
  Country: CO (occurrence: CO)
  Receive Date: 20240215
  Receipt Date: 20240217
  Transmission Date: 20240410
  Serious: Yes (Hospitalization, Other)
  Sender: FDA-Public Use
  Company Number: CO-ABBVIE-5637339

PATIENT
  Age: 78 Year
  Sex: Male
  Weight: 40 kg

DRUGS (1)
  1. VENCLEXTA [Suspect]
     Active Substance: VENETOCLAX
     Indication: Chronic lymphocytic leukaemia
     Dosage: 400 MILLIGRAM?FORM STRENGTH: 100 MILLIGRAM
     Route: 048
     Dates: start: 20230613, end: 20231116

REACTIONS (7)
  - Cholelithiasis [Recovered/Resolved]
  - Hepatic cirrhosis [Not Recovered/Not Resolved]
  - Skin disorder [Unknown]
  - Fluid retention [Unknown]
  - Pancreatitis [Recovered/Resolved]
  - Bacterial infection [Not Recovered/Not Resolved]
  - Infection parasitic [Not Recovered/Not Resolved]

NARRATIVE: CASE EVENT DATE: 20231201
